FAERS Safety Report 4830535-9 (Version None)
Quarter: 2005Q4

REPORT INFORMATION
  Report Type: 
  Country: None (occurrence: None)
  Receive Date: 20051115
  Receipt Date: 20051103
  Transmission Date: 20060501
  Serious: Yes (Other)
  Sender: FDA-Public Use
  Company Number: 2005151238

PATIENT
  Age: 54 Year
  Sex: Male
  Weight: 77.1115 kg

DRUGS (3)
  1. NEURONTIN [Suspect]
     Indication: ILL-DEFINED DISORDER
     Dosage: 1200 MG
     Dates: start: 20020801
  2. VICODIN [Concomitant]
  3. PAXIL [Concomitant]

REACTIONS (6)
  - BURNING SENSATION [None]
  - INTERVERTEBRAL DISC DISORDER [None]
  - NEUROPATHY [None]
  - SNEEZING [None]
  - TOE DEFORMITY [None]
  - TREMOR [None]
